FAERS Safety Report 5167917-4 (Version None)
Quarter: 2006Q4

REPORT INFORMATION
  Report Type: 
  Country: None (occurrence: None)
  Receive Date: 20061208
  Receipt Date: 20031125
  Transmission Date: 20070319
  Serious: Yes (Hospitalization)
  Sender: FDA-Public Use
  Company Number: US-GLAXOSMITHKLINE-A0441115A

PATIENT
  Age: 57 Year
  Sex: Male

DRUGS (6)
  1. AVANDAMET [Suspect]
     Dosage: 1Z SEE DOSAGE TEXT
     Route: 048
     Dates: start: 20030501
  2. AMARYL [Concomitant]
  3. LANTUS [Concomitant]
  4. ZESTORETIC [Concomitant]
  5. LIPITOR [Concomitant]
  6. NIFEDIPINE [Concomitant]

REACTIONS (3)
  - JOINT SWELLING [None]
  - OEDEMA PERIPHERAL [None]
  - PHARMACEUTICAL PRODUCT COMPLAINT [None]
